FAERS Safety Report 12037530 (Version 1)
Quarter: 2016Q1

REPORT INFORMATION
  Report Type: Spontaneous
  Country: IQ (occurrence: IQ)
  Receive Date: 20160208
  Receipt Date: 20160208
  Transmission Date: 20160526
  Serious: Yes (Hospitalization, Disabling, Other)
  Sender: FDA-Public Use
  Company Number: PHHY2016IQ010254

PATIENT
  Age: 4 Year
  Sex: Female
  Weight: 13.9 kg

DRUGS (1)
  1. EXJADE [Suspect]
     Active Substance: DEFERASIROX
     Indication: IRON OVERLOAD
     Dosage: 31.25 MG/KG, QD
     Route: 048
     Dates: start: 20110505, end: 20151028

REACTIONS (8)
  - Dysuria [Unknown]
  - Blood creatinine increased [Unknown]
  - Urine abnormality [Unknown]
  - Urine output decreased [Unknown]
  - Blood urea increased [Unknown]
  - Flank pain [Unknown]
  - Infection [Unknown]
  - Chronic kidney disease [Not Recovered/Not Resolved]

NARRATIVE: CASE EVENT DATE: 20140930
